FAERS Safety Report 20814703 (Version 1)
Quarter: 2022Q2

REPORT INFORMATION
  Report Type: Spontaneous
  Country: US (occurrence: None)
  Receive Date: 20220511
  Receipt Date: 20220511
  Transmission Date: 20220721
  Serious: Yes (Hospitalization)
  Sender: FDA-Public Use
  Company Number: None

PATIENT
  Age: 58 Year
  Sex: Male
  Weight: 82.5 kg

DRUGS (1)
  1. TAXOL [Suspect]
     Active Substance: PACLITAXEL
     Dates: end: 20220420

REACTIONS (6)
  - Pulmonary embolism [None]
  - Alanine aminotransferase increased [None]
  - Transaminases increased [None]
  - Portal vein thrombosis [None]
  - Aspartate aminotransferase increased [None]
  - Liver injury [None]

NARRATIVE: CASE EVENT DATE: 20220506
